FAERS Safety Report 7182764-X (Version None)
Quarter: 2010Q4

REPORT INFORMATION
  Report Type: 
  Country: None (occurrence: None)
  Receive Date: 20101221
  Receipt Date: 20100526
  Transmission Date: 20110411
  Serious: No
  Sender: FDA-Public Use
  Company Number: US-AMGEN-KDL411416

PATIENT

DRUGS (3)
  1. ENBREL [Suspect]
     Indication: RHEUMATOID ARTHRITIS
     Dosage: 50 MG, QWK
     Route: 058
     Dates: start: 20100319
  2. LEFLUNOMIDE [Concomitant]
     Dosage: 20 MG, QOD
     Route: 048
  3. METHOTREXATE [Concomitant]
     Dosage: 10 MG, QWK
     Route: 048

REACTIONS (4)
  - DYSPHAGIA [None]
  - MILIA [None]
  - STREPTOCOCCAL INFECTION [None]
  - SWELLING FACE [None]
